FAERS Safety Report 23381781 (Version 1)
Quarter: 2024Q1

REPORT INFORMATION
  Report Type: Spontaneous
  Country: None (occurrence: UA)
  Receive Date: 20240109
  Receipt Date: 20240109
  Transmission Date: 20240410
  Serious: Yes (Life-Threatening, Other)
  Sender: FDA-Public Use
  Company Number: UA-B.Braun Medical Inc.-2150638

PATIENT
  Age: 39 Year
  Sex: Female

DRUGS (7)
  1. BUPIVACAINE HYDROCHLORIDE WITH DEXTROSE [Suspect]
     Active Substance: BUPIVACAINE HYDROCHLORIDE
     Indication: General anaesthesia
     Dates: start: 20231030, end: 20231030
  2. PROPOFOL LIPURO [Suspect]
     Active Substance: PROPOFOL
  3. FENTANYL [Suspect]
     Active Substance: FENTANYL\FENTANYL CITRATE
  4. LACTATED RINGERS SOLUTION [Suspect]
     Active Substance: CALCIUM CHLORIDE\POTASSIUM CHLORIDE\SODIUM CHLORIDE\SODIUM LACTATE
  5. MORPHINE [Concomitant]
     Active Substance: MORPHINE
  6. KETOROLAC [Concomitant]
     Active Substance: KETOROLAC TROMETHAMINE
  7. OXYTOCIN [Concomitant]
     Active Substance: OXYTOCIN

REACTIONS (7)
  - Disseminated intravascular coagulation [None]
  - Uterine haemorrhage [None]
  - Hysterectomy [None]
  - Tachycardia [None]
  - Tremor [None]
  - Acute kidney injury [None]
  - Maternal exposure during pregnancy [None]
